FAERS Safety Report 17790323 (Version 1)
Quarter: 2020Q2

REPORT INFORMATION
  Report Type: Report from Study
  Country: PH (occurrence: PH)
  Receive Date: 20200515
  Receipt Date: 20200515
  Transmission Date: 20200714
  Serious: Yes (Hospitalization)
  Sender: FDA-Public Use
  Company Number: NVSC2020PH130536

PATIENT

DRUGS (4)
  1. ENTRESTO [Suspect]
     Active Substance: SACUBITRIL\VALSARTAN
     Indication: BLOOD PRESSURE MEASUREMENT
     Dosage: 50 MG (HALF TABLET), BID
     Route: 048
     Dates: start: 20200505
  2. ENTRESTO [Suspect]
     Active Substance: SACUBITRIL\VALSARTAN
     Indication: HEART RATE
  3. ASPILETS [Concomitant]
     Active Substance: ASPIRIN
     Indication: CARDIOVASCULAR DISORDER
     Dosage: 80 MG, QD
     Route: 065
     Dates: start: 20200505
  4. CHOLINERV [Concomitant]
     Indication: NERVE INJURY
     Dosage: 1 DF, QD
     Route: 065
     Dates: start: 20200505

REACTIONS (5)
  - Wrong technique in product usage process [Unknown]
  - Cerebrovascular disorder [Unknown]
  - Product use in unapproved indication [Unknown]
  - Cardiomyopathy [Unknown]
  - Prescribed underdose [Unknown]
